FAERS Safety Report 10534467 (Version 1)
Quarter: 2014Q4

REPORT INFORMATION
  Report Type: Spontaneous
  Country: US (occurrence: US)
  Receive Date: 20141022
  Receipt Date: 20141022
  Transmission Date: 20150529
  Serious: Yes (Other)
  Sender: FDA-Public Use
  Company Number: US-TEVA-517007USA

PATIENT
  Age: 19 Year
  Sex: Female

DRUGS (2)
  1. ADDERALL [Concomitant]
     Active Substance: AMPHETAMINE ASPARTATE\AMPHETAMINE SULFATE\DEXTROAMPHETAMINE SACCHARATE\DEXTROAMPHETAMINE SULFATE
     Indication: ATTENTION DEFICIT/HYPERACTIVITY DISORDER
  2. PARAGARD T380A [Suspect]
     Active Substance: COPPER
     Indication: CONTRACEPTION
     Route: 015
     Dates: start: 200406

REACTIONS (7)
  - Device dislocation [Not Recovered/Not Resolved]
  - Expired device used [Not Recovered/Not Resolved]
  - Hydrometra [Unknown]
  - Ovarian enlargement [Unknown]
  - Back pain [Recovered/Resolved]
  - Dysmenorrhoea [Recovered/Resolved]
  - Urinary tract infection bacterial [Recovered/Resolved]

NARRATIVE: CASE EVENT DATE: 200406
